FAERS Safety Report 23387531 (Version 1)
Quarter: 2024Q1

REPORT INFORMATION
  Report Type: Report from Study
  Country: AT (occurrence: AT)
  Receive Date: 20240110
  Receipt Date: 20240110
  Transmission Date: 20240409
  Serious: Yes (Hospitalization)
  Sender: FDA-Public Use
  Company Number: AT-TEVA-2023-AT-2932475

PATIENT
  Age: 64 Year
  Sex: Female

DRUGS (11)
  1. RITUXIMAB [Suspect]
     Active Substance: RITUXIMAB
     Indication: Follicular lymphoma
     Dosage: FREQ:4 WK;DOSAGE TEXT: 620 MG DAY 1 OF EACH CYCLE, (C1-C5), EVERY 4 WEEKS
     Route: 042
  2. RITUXIMAB [Suspect]
     Active Substance: RITUXIMAB
     Dosage: FREQ:4 WK;DOSAGE TEXT: 641 MG, EVERY 4 WEEKS
     Route: 042
  3. LENALIDOMIDE [Suspect]
     Active Substance: LENALIDOMIDE
     Indication: Follicular lymphoma
     Dosage: DOSAGE TEXT: 20 MG DAYS 1 TO 21 OF A 28-DAY CYCLE, EVERY 1 DAYS,
     Route: 048
     Dates: start: 20230504, end: 20230919
  4. ACETAMINOPHEN [Concomitant]
     Active Substance: ACETAMINOPHEN
     Indication: Premedication
     Dosage: 1000 MG, EVERY WEEK
     Route: 065
     Dates: start: 20230504
  5. METOCLOPRAMIDE HYDROCHLORIDE [Concomitant]
     Active Substance: METOCLOPRAMIDE HYDROCHLORIDE
     Indication: Prophylaxis of nausea and vomiting
     Dosage: 10 MG, AS NEEDED
     Route: 065
     Dates: start: 20230504
  6. FERRETAB [ASCORBIC ACID;FERROUS FUMARATE] [Concomitant]
     Indication: Iron deficiency
     Dosage: 1 TABLET, DAILY
     Route: 065
     Dates: start: 20230801
  7. ACETAMINOPHEN [Concomitant]
     Active Substance: ACETAMINOPHEN
     Indication: Pain prophylaxis
     Dosage: FREQ:.25 D;DOSAGE TEXT: 500 MG, 4 TIMES A DAY
     Route: 065
     Dates: start: 20230504
  8. MAGNESIUM CARBONATE\MAGNESIUM OXIDE [Concomitant]
     Active Substance: MAGNESIUM CARBONATE\MAGNESIUM OXIDE
     Indication: Muscle spasms
     Dosage: DOSAGE TEXT: 1 BAG, AS NECESSARY
     Route: 065
     Dates: start: 20230519
  9. POLYETHYLENE GLYCOL 3350\POTASSIUM CHLORIDE\SODIUM BICARBONATE\SODIUM [Concomitant]
     Active Substance: POLYETHYLENE GLYCOL 3350\POTASSIUM CHLORIDE\SODIUM BICARBONATE\SODIUM CHLORIDE
     Indication: Constipation prophylaxis
     Dosage: DOSAGE TEXT: 1 BAG, 3 TIMES A DAY
     Route: 065
     Dates: start: 20230504
  10. ZOFRAN [Concomitant]
     Active Substance: ONDANSETRON HYDROCHLORIDE
     Indication: Prophylaxis of nausea and vomiting
     Dosage: DOSAGE TEXT: 8 MG, AS NECESSARY
     Route: 065
     Dates: start: 20230504
  11. ASPIRIN [Concomitant]
     Active Substance: ASPIRIN
     Indication: Thrombosis prophylaxis
     Dosage: DOSAGE TEXT: 100 MG, AS NECESSARY
     Route: 065
     Dates: start: 20230504

REACTIONS (4)
  - Dysuria [Unknown]
  - Fatigue [Not Recovered/Not Resolved]
  - Cytomegalovirus infection [Recovered/Resolved]
  - Pyrexia [Not Recovered/Not Resolved]

NARRATIVE: CASE EVENT DATE: 20230921
